FAERS Safety Report 19653006 (Version 1)
Quarter: 2021Q3

REPORT INFORMATION
  Report Type: Report from Study
  Country: US (occurrence: US)
  Receive Date: 20210803
  Receipt Date: 20210803
  Transmission Date: 20211014
  Serious: Yes (Hospitalization)
  Sender: FDA-Public Use
  Company Number: US-EISAI MEDICAL RESEARCH-EC-2021-096896

PATIENT
  Age: 68 Year
  Sex: Male
  Weight: 127 kg

DRUGS (33)
  1. LENVIMA [Suspect]
     Active Substance: LENVATINIB
     Route: 048
     Dates: start: 2021, end: 202107
  2. VITAMIN C [Concomitant]
     Active Substance: ASCORBIC ACID
  3. IRON 325(65) [Concomitant]
  4. COLCHICINE. [Concomitant]
     Active Substance: COLCHICINE
  5. LIDOCAINE. [Concomitant]
     Active Substance: LIDOCAINE
  6. MIRALAX [Concomitant]
     Active Substance: POLYETHYLENE GLYCOL 3350
  7. LENVIMA [Suspect]
     Active Substance: LENVATINIB
     Route: 048
     Dates: start: 2021, end: 2021
  8. AMBIEN [Concomitant]
     Active Substance: ZOLPIDEM TARTRATE
  9. XARELTO [Concomitant]
     Active Substance: RIVAROXABAN
  10. VITAMIN B12 [Concomitant]
     Active Substance: CYANOCOBALAMIN
  11. RITALIN [Concomitant]
     Active Substance: METHYLPHENIDATE HYDROCHLORIDE
  12. SENNA?S [Concomitant]
     Active Substance: DOCUSATE SODIUM\SENNOSIDES
  13. PANTOPRAZOLE SODIUM. [Concomitant]
     Active Substance: PANTOPRAZOLE SODIUM
  14. LISINOPRIL. [Concomitant]
     Active Substance: LISINOPRIL
  15. CARVEDILOL. [Concomitant]
     Active Substance: CARVEDILOL
  16. CALCIUM [Concomitant]
     Active Substance: CALCIUM
  17. LENVIMA [Suspect]
     Active Substance: LENVATINIB
     Indication: RENAL CANCER
     Route: 048
     Dates: start: 20210115, end: 2021
  18. HYDROCODONE?ACETAMINOPHEN [Concomitant]
     Active Substance: ACETAMINOPHEN\HYDROCODONE
  19. ROSUVASTATIN CALCIUM. [Concomitant]
     Active Substance: ROSUVASTATIN CALCIUM
  20. ONDANSETRON [Concomitant]
     Active Substance: ONDANSETRON
  21. IMODIUM [Concomitant]
     Active Substance: LOPERAMIDE HYDROCHLORIDE
  22. MIRTAZAPINE. [Concomitant]
     Active Substance: MIRTAZAPINE
  23. HYDRALAZINE HCL [Concomitant]
     Active Substance: HYDRALAZINE HYDROCHLORIDE
  24. MINOCYCLINE HCL [Concomitant]
     Active Substance: MINOCYCLINE HYDROCHLORIDE
  25. VITAMIN D3 [Concomitant]
     Active Substance: CHOLECALCIFEROL
  26. FENOFIBRATE. [Concomitant]
     Active Substance: FENOFIBRATE
  27. TYLENOL [Concomitant]
     Active Substance: ACETAMINOPHEN
  28. GABAPENTIN. [Concomitant]
     Active Substance: GABAPENTIN
  29. DULOXETINE HCL [Concomitant]
     Active Substance: DULOXETINE HYDROCHLORIDE
  30. CLONIDINE HCL [Concomitant]
     Active Substance: CLONIDINE HYDROCHLORIDE
  31. FUROSEMIDE. [Concomitant]
     Active Substance: FUROSEMIDE
  32. DIAZEPAM. [Concomitant]
     Active Substance: DIAZEPAM
  33. SIMETHICONE (DIMETHICONE) [Concomitant]
     Active Substance: DIMETHICONE

REACTIONS (2)
  - Dehydration [Unknown]
  - Diarrhoea [Unknown]

NARRATIVE: CASE EVENT DATE: 2021
